FAERS Safety Report 7169915-8 (Version None)
Quarter: 2010Q4

REPORT INFORMATION
  Report Type: 
  Country: None (occurrence: None)
  Receive Date: 20101206
  Receipt Date: 20101124
  Transmission Date: 20110411
  Serious: Yes (Hospitalization)
  Sender: FDA-Public Use
  Company Number: DSA_44442_2010

PATIENT
  Age: 80 Year
  Sex: Female

DRUGS (2)
  1. MONO-TILDIEM (MONO-TILDIEM-DILTIAZEM HYDROCHLORIDE PROLONGED RELEASE) [Suspect]
     Indication: PRODUCT USED FOR UNKNOWN INDICATION
     Dosage: (200 MG QD ORAL)
     Route: 048
     Dates: start: 20101001, end: 20101022
  2. KERLONE (KERLONE-BETAXOLOL HYDROCHLORIDE) 20 MG (NOT SPECIFIED) [Suspect]
     Indication: PRODUCT USED FOR UNKNOWN INDICATION
     Dosage: (20 MG QD ORAL)
     Route: 048

REACTIONS (5)
  - ATRIAL FIBRILLATION [None]
  - ATRIOVENTRICULAR BLOCK COMPLETE [None]
  - BRADYCARDIA [None]
  - HEART RATE ABNORMAL [None]
  - MALAISE [None]
